FAERS Safety Report 8229295-3 (Version None)
Quarter: 2012Q1

REPORT INFORMATION
  Report Type: 
  Country: None (occurrence: None)
  Receive Date: 20120322
  Receipt Date: 20120321
  Transmission Date: 20120608
  Serious: Yes (Other)
  Sender: FDA-Public Use
  Company Number: US-PFIZER INC-2012066279

PATIENT
  Sex: Female

DRUGS (3)
  1. DETROL [Suspect]
     Dosage: UNK
  2. VISTARIL [Suspect]
     Dosage: UNK
  3. PREMARIN [Suspect]
     Dosage: UNK

REACTIONS (1)
  - HEARING IMPAIRED [None]
